FAERS Safety Report 24535618 (Version 1)
Quarter: 2024Q4

REPORT INFORMATION
  Report Type: Spontaneous
  Country: KR (occurrence: KR)
  Receive Date: 20241022
  Receipt Date: 20241022
  Transmission Date: 20250115
  Serious: Yes (Other)
  Sender: NOVARTIS
  Company Number: KR-002147023-NVSC2024KR200033

PATIENT
  Age: 69 Year
  Sex: Male
  Weight: 72.3 kg

DRUGS (5)
  1. KYMRIAH [Suspect]
     Active Substance: TISAGENLECLEUCEL
     Indication: Diffuse large B-cell lymphoma
     Dosage: UNK, ONCE/SINGLE (4.7E8)
     Route: 042
     Dates: start: 20241007, end: 20241007
  2. CRESNON [Concomitant]
     Indication: Dyslipidaemia
     Dosage: 5 MG, QD
     Route: 048
  3. EDOXABAN TOSYLATE [Concomitant]
     Active Substance: EDOXABAN TOSYLATE
     Indication: Deep vein thrombosis
     Dosage: 30MG QD
     Route: 048
     Dates: start: 20241016
  4. METFORMIN HYDROCHLORIDE [Concomitant]
     Active Substance: METFORMIN HYDROCHLORIDE
     Indication: Diabetes mellitus
     Dosage: 1000 MG
     Route: 048
  5. METFORMIN HYDROCHLORIDE [Concomitant]
     Active Substance: METFORMIN HYDROCHLORIDE
     Dosage: 500 MG, BID
     Route: 048

REACTIONS (10)
  - Cytokine release syndrome [Recovered/Resolved]
  - Hypoxia [Recovered/Resolved]
  - Hypokalaemia [Recovered/Resolved]
  - Urticaria [Recovered/Resolved]
  - Pyrexia [Recovered/Resolved]
  - Hypotension [Recovered/Resolved]
  - Pyrexia [Recovered/Resolved]
  - Diarrhoea [Recovered/Resolved]
  - Hypoalbuminaemia [Recovering/Resolving]
  - Hypocalcaemia [Recovering/Resolving]

NARRATIVE: CASE EVENT DATE: 20241007
